FAERS Safety Report 5206093-6 (Version None)
Quarter: 2007Q1

REPORT INFORMATION
  Report Type: 
  Country: None (occurrence: None)
  Receive Date: 20070108
  Receipt Date: 20061227
  Transmission Date: 20070707
  Serious: Yes (Other)
  Sender: FDA-Public Use
  Company Number: 07011963

PATIENT
  Age: 80 Year
  Sex: Female

DRUGS (2)
  1. FLUOCINONIDE [Suspect]
     Indication: ECZEMA
     Dosage: QD, TOPICAL
     Route: 061
  2. KEFLEX [Concomitant]

REACTIONS (1)
  - HYPERSENSITIVITY [None]
